FAERS Safety Report 8195452-8 (Version None)
Quarter: 2012Q1

REPORT INFORMATION
  Report Type: 
  Country: None (occurrence: None)
  Receive Date: 20120308
  Receipt Date: 20120228
  Transmission Date: 20120608
  Serious: Yes (Life-Threatening, Hospitalization, Other)
  Sender: FDA-Public Use
  Company Number: PHHO2012NL002999

PATIENT
  Sex: Male
  Weight: 72.1 kg

DRUGS (5)
  1. ENALAPRIL MALEATE [Concomitant]
  2. MYFORTIC [Suspect]
     Indication: RENAL TRANSPLANT
     Dosage: 2 DD 5
     Dates: start: 20110120, end: 20111227
  3. STEROID [Concomitant]
     Indication: RENAL TRANSPLANT
     Dosage: 1 DD 10
     Dates: start: 20110120, end: 20111227
  4. PROGRAF [Suspect]
     Indication: RENAL TRANSPLANT
     Dosage: 2 DD 3
     Route: 048
     Dates: start: 20110120
  5. HYDROCHLOROTHIAZIDE [Concomitant]

REACTIONS (8)
  - INFECTIOUS PERITONITIS [None]
  - GASTROENTERITIS [None]
  - OEDEMA PERIPHERAL [None]
  - DIARRHOEA [None]
  - LUNG NEOPLASM MALIGNANT [None]
  - RENAL FAILURE ACUTE [None]
  - HYDRONEPHROSIS [None]
  - UROSEPSIS [None]
